FAERS Safety Report 7819242-8 (Version None)
Quarter: 2011Q4

REPORT INFORMATION
  Report Type: 
  Country: None (occurrence: None)
  Receive Date: 20111018
  Receipt Date: 20111010
  Transmission Date: 20120403
  Serious: Yes (Other)
  Sender: FDA-Public Use
  Company Number: US-SANOFI-AVENTIS-2011SA046900

PATIENT
  Age: 82 Year
  Sex: Female
  Weight: 41.73 kg

DRUGS (6)
  1. ALL OTHER THERAPEUTIC PRODUCTS [Concomitant]
  2. MULTAQ [Suspect]
     Route: 048
     Dates: start: 20100416
  3. DIGOXIN [Concomitant]
  4. ASPIRIN [Concomitant]
     Indication: THROMBOSIS PROPHYLAXIS
  5. HYDROCHLOROTHIAZIDE [Concomitant]
  6. MULTAQ [Suspect]
     Indication: ATRIAL FIBRILLATION
     Route: 048
     Dates: start: 20100416

REACTIONS (8)
  - DECREASED APPETITE [None]
  - WEIGHT DECREASED [None]
  - AGEUSIA [None]
  - ATRIAL FIBRILLATION [None]
  - TACHYCARDIA [None]
  - ERYTHEMA [None]
  - DRUG ADMINISTRATION ERROR [None]
  - CONSTIPATION [None]
